FAERS Safety Report 10508474 (Version 1)
Quarter: 2014Q4

REPORT INFORMATION
  Report Type: Spontaneous
  Country: US (occurrence: None)
  Receive Date: 20141007
  Receipt Date: 20141007
  Transmission Date: 20150528
  Serious: Yes (Other)
  Sender: FDA-Public Use
  Company Number: 2014NUEUSA00385

PATIENT
  Age: 35 Year
  Sex: Male

DRUGS (5)
  1. NORCO (HYDROCODONE BITARTRATE, PARACETAMOL) 2008 TO ONGOING [Concomitant]
  2. ZANAFLEX (TIZANIDINE HYDROCHLORIDE) 2013 TO ONGOING [Concomitant]
  3. NUEDEXTA [Suspect]
     Active Substance: DEXTROMETHORPHAN HYDROBROMIDE\QUINIDINE SULFATE
     Indication: CRANIOCEREBRAL INJURY
     Dosage: 1 CAP, QD
     Dates: start: 20140417, end: 20140423
  4. CANNABIS SATIVA SUBSP. SATIVA FLOWERING TOP [Concomitant]
     Active Substance: CANNABIS SATIVA SUBSP. SATIVA FLOWERING TOP
  5. TOPAMAX (TOPIRAMATE) 2008 TO ONGOING [Concomitant]

REACTIONS (5)
  - Tinnitus [None]
  - Agitation [None]
  - Aggression [None]
  - Impatience [None]
  - Psychotic disorder [None]

NARRATIVE: CASE EVENT DATE: 20140417
